FAERS Safety Report 24585014 (Version 5)
Quarter: 2024Q4

REPORT INFORMATION
  Report Type: Report from Study
  Country: ZA (occurrence: ZA)
  Receive Date: 20241106
  Receipt Date: 20241127
  Transmission Date: 20250115
  Serious: Yes (Other)
  Sender: NOVARTIS
  Company Number: ZA-002147023-NVSC2024ZA209973

PATIENT
  Age: 35 Year
  Sex: Female

DRUGS (1)
  1. COSENTYX [Suspect]
     Active Substance: SECUKINUMAB
     Indication: Psoriatic arthropathy
     Dosage: 150 MG, QMO
     Route: 058
     Dates: start: 20241025

REACTIONS (7)
  - Fatigue [Unknown]
  - Loss of consciousness [Unknown]
  - Nausea [Unknown]
  - Pain [Unknown]
  - Diarrhoea [Unknown]
  - Spinal pain [Unknown]
  - Radicular pain [Unknown]

NARRATIVE: CASE EVENT DATE: 20241025
